FAERS Safety Report 23178792 (Version 1)
Quarter: 2023Q4

REPORT INFORMATION
  Report Type: Spontaneous
  Country: US (occurrence: US)
  Receive Date: 20231113
  Receipt Date: 20231113
  Transmission Date: 20240109
  Serious: No
  Sender: FDA-Public Use
  Company Number: US-WW-2023-0843-LUN

PATIENT
  Age: 88 Year
  Sex: Female
  Weight: 79.38 kg

DRUGS (2)
  1. LUNESTA [Suspect]
     Active Substance: ESZOPICLONE
     Indication: Insomnia
     Dosage: 3 MG
     Dates: start: 20210801
  2. DIETARY SUPPLEMENT\HERBALS\INDIAN FRANKINCENSE [Suspect]
     Active Substance: DIETARY SUPPLEMENT\HERBALS\INDIAN FRANKINCENSE
     Indication: Arthralgia
     Dates: start: 20230827

REACTIONS (2)
  - Balance disorder [Recovered/Resolved]
  - Dizziness [Fatal]

NARRATIVE: CASE EVENT DATE: 20230828
